FAERS Safety Report 9481015 (Version 1)
Quarter: 2013Q3

REPORT INFORMATION
  Report Type: Spontaneous
  Country: US (occurrence: US)
  Receive Date: 20130828
  Receipt Date: 20130828
  Transmission Date: 20140515
  Serious: Yes (Other)
  Sender: FDA-Public Use
  Company Number: US-AMGEN-KDL147150

PATIENT
  Age: 58 Year
  Sex: Female

DRUGS (2)
  1. ENBREL [Suspect]
     Indication: RHEUMATOID ARTHRITIS
     Dosage: 25 MG, 2 TIMES/WK
     Route: 058
     Dates: start: 19990601
  2. AZATHIOPRINE [Concomitant]
     Dosage: 150 MG, QD
     Dates: start: 20050501

REACTIONS (8)
  - Localised infection [Unknown]
  - Wound complication [Unknown]
  - Wound secretion [Unknown]
  - Tenderness [Unknown]
  - Local swelling [Unknown]
  - Pain in extremity [Unknown]
  - Dizziness [Recovered/Resolved]
  - Injection site pain [Recovered/Resolved]
